FAERS Safety Report 12929804 (Version 1)
Quarter: 2016Q4

REPORT INFORMATION
  Report Type: Spontaneous
  Country: BR (occurrence: BR)
  Receive Date: 20161110
  Receipt Date: 20161110
  Transmission Date: 20170207
  Serious: Yes (Death, Other)
  Sender: FDA-Public Use
  Company Number: BR-ALEXION-A201608604

PATIENT
  Age: 21 Year
  Sex: Female

DRUGS (3)
  1. POLYMYXIN B. [Concomitant]
     Active Substance: POLYMYXIN B
     Indication: SEPSIS
     Dosage: 5000, Q12H
     Route: 065
  2. SOLIRIS [Suspect]
     Active Substance: ECULIZUMAB
     Indication: HAEMOLYTIC URAEMIC SYNDROME
     Dosage: 900 MG, QW
     Route: 042
     Dates: start: 20160903, end: 20160924
  3. SOLIRIS [Suspect]
     Active Substance: ECULIZUMAB
     Dosage: 1200 MG, Q2W
     Route: 042
     Dates: start: 20161001, end: 20161015

REACTIONS (3)
  - Multiple organ dysfunction syndrome [Fatal]
  - Schistocytosis [Unknown]
  - Septic shock [Fatal]

NARRATIVE: CASE EVENT DATE: 20161031
